FAERS Safety Report 16342371 (Version 1)
Quarter: 2019Q2

REPORT INFORMATION
  Report Type: Spontaneous
  Country: US (occurrence: US)
  Receive Date: 20190417
  Receipt Date: 20190417
  Transmission Date: 20190711
  Serious: No
  Sender: FDA-Public Use
  Company Number: None

PATIENT
  Age: 59 Year
  Sex: Female

DRUGS (1)
  1. CAPECITABINE TAB 500 MG [Suspect]
     Active Substance: CAPECITABINE
     Dates: start: 20190401

REACTIONS (4)
  - Taste disorder [None]
  - Diarrhoea [None]
  - Decreased appetite [None]
  - Parosmia [None]

NARRATIVE: CASE EVENT DATE: 20190417
